FAERS Safety Report 5570491-1 (Version None)
Quarter: 2007Q4

REPORT INFORMATION
  Report Type: 
  Country: None (occurrence: None)
  Receive Date: 20071221
  Receipt Date: 20071101
  Transmission Date: 20080405
  Serious: No
  Sender: FDA-Public Use
  Company Number: US-BRISTOL-MYERS SQUIBB COMPANY-13968011

PATIENT
  Sex: Female

DRUGS (2)
  1. ORENCIA [Suspect]
     Route: 042
  2. SODIUM CHLORIDE 0.9% [Concomitant]

REACTIONS (1)
  - INJECTION SITE STREAKING [None]
